FAERS Safety Report 7674242-6 (Version None)
Quarter: 2011Q3

REPORT INFORMATION
  Report Type: 
  Country: None (occurrence: None)
  Receive Date: 20110810
  Receipt Date: 20110728
  Transmission Date: 20111222
  Serious: Yes (Other)
  Sender: FDA-Public Use
  Company Number: CA-ELI_LILLY_AND_COMPANY-CA201107008015

PATIENT
  Age: 64 Year
  Sex: Female

DRUGS (14)
  1. HUMALOG [Suspect]
     Dosage: 10 U, TID
  2. CRESTOR [Concomitant]
     Dosage: 10 MG, QD
  3. CETIRIZINE HCL [Concomitant]
     Dosage: 10 MG, UNKNOWN
  4. LEVOCARB [Concomitant]
     Dosage: 125 MG, PRN
  5. HUMULIN N [Suspect]
     Dosage: 20 U, EACH MORNING
  6. COZAAR [Concomitant]
     Dosage: 100 MG, QD
  7. FUROSEMIDE [Concomitant]
     Dosage: 40 MG, QD
  8. ASPIRIN [Concomitant]
     Dosage: UNK, QD
  9. OMEPRAZOLE [Concomitant]
     Indication: GASTROOESOPHAGEAL REFLUX DISEASE
     Dosage: 20 MG, QD
  10. WARFARIN [Concomitant]
     Dosage: 3 MG, UNKNOWN
  11. SLOW-K [Concomitant]
     Dosage: 600 MG, UNKNOWN
  12. HUMULIN N [Suspect]
     Dosage: 60 U, EACH EVENING
  13. DIGOXIN [Concomitant]
     Dosage: .25 MG, QD
  14. COREG [Concomitant]
     Dosage: 25 MG, BID

REACTIONS (6)
  - BLOOD GLUCOSE DECREASED [None]
  - INJECTION SITE PAIN [None]
  - MASTOCYTOSIS [None]
  - CARDIAC FAILURE CONGESTIVE [None]
  - HEADACHE [None]
  - BLOOD GLUCOSE INCREASED [None]
